FAERS Safety Report 11157170 (Version 1)
Quarter: 2015Q2

REPORT INFORMATION
  Report Type: Spontaneous
  Country: US (occurrence: None)
  Receive Date: 20150601
  Receipt Date: 20150601
  Transmission Date: 20150821
  Serious: Yes (Other)
  Sender: FDA-Public Use
  Company Number: None

PATIENT
  Age: 54 Year
  Sex: Male
  Weight: 130.18 kg

DRUGS (6)
  1. LISINOPRIL. [Concomitant]
     Active Substance: LISINOPRIL
  2. ASPIRIN. [Concomitant]
     Active Substance: ASPIRIN
  3. KERYDIN [Suspect]
     Active Substance: TAVABOROLE
     Indication: ONYCHOMYCOSIS
     Dosage: ONCE DAILY TOPICALLY ON TOENAILS
     Route: 061
     Dates: start: 20150428, end: 20150508
  4. COLACE [Concomitant]
     Active Substance: DOCUSATE SODIUM
  5. CRESTOR [Concomitant]
     Active Substance: ROSUVASTATIN CALCIUM
  6. ACTOS [Concomitant]
     Active Substance: PIOGLITAZONE HYDROCHLORIDE

REACTIONS (5)
  - Feeling abnormal [None]
  - Rash erythematous [None]
  - Peripheral swelling [None]
  - Rash pruritic [None]
  - Application site rash [None]

NARRATIVE: CASE EVENT DATE: 20150428
